FAERS Safety Report 8338728-3 (Version None)
Quarter: 2012Q2

REPORT INFORMATION
  Report Type: 
  Country: None (occurrence: None)
  Receive Date: 20120504
  Receipt Date: 20120420
  Transmission Date: 20120825
  Serious: Yes (Other)
  Sender: FDA-Public Use
  Company Number: CHPA2012US009781

PATIENT
  Age: 54 Year
  Sex: Male

DRUGS (1)
  1. PHENYLEPHRINE HCL [Suspect]
     Indication: HYPERSENSITIVITY
     Dosage: UNK, PRN
     Route: 045
     Dates: start: 19900901

REACTIONS (2)
  - MYOCARDIAL INFARCTION [None]
  - STRESS [None]
